FAERS Safety Report 5751853-6 (Version None)
Quarter: 2008Q2

REPORT INFORMATION
  Report Type: 
  Country: None (occurrence: None)
  Receive Date: 20080527
  Receipt Date: 20080513
  Transmission Date: 20081010
  Serious: Yes (Hospitalization)
  Sender: FDA-Public Use
  Company Number: 2008-01629

PATIENT
  Age: 63 Year
  Sex: Male
  Weight: 108 kg

DRUGS (2)
  1. VELCADE [Suspect]
     Indication: MANTLE CELL LYMPHOMA
     Dosage: 1.3 MG/M2, UNK, IV BOLUS
     Route: 040
     Dates: start: 20080407, end: 20080505
  2. REVLIMID [Suspect]
     Indication: MANTLE CELL LYMPHOMA
     Dosage: 20 MG
     Dates: start: 20080407, end: 20080507

REACTIONS (6)
  - ORTHOSTATIC HYPOTENSION [None]
  - OTITIS EXTERNA [None]
  - PNEUMONIA [None]
  - PNEUMONITIS [None]
  - SYNCOPE [None]
  - THROMBOCYTOPENIA [None]
